FAERS Safety Report 19300005 (Version 2)
Quarter: 2021Q2

REPORT INFORMATION
  Report Type: Spontaneous
  Country: CN (occurrence: CN)
  Receive Date: 20210525
  Receipt Date: 20210608
  Transmission Date: 20210717
  Serious: Yes (Death, Hospitalization, Other)
  Sender: FDA-Public Use
  Company Number: CN-ASTELLAS-2021US018839

PATIENT
  Age: 65 Year
  Sex: Male

DRUGS (1)
  1. XTANDI [Suspect]
     Active Substance: ENZALUTAMIDE
     Indication: PROSTATE CANCER METASTATIC
     Route: 048
     Dates: start: 20210402, end: 20210523

REACTIONS (4)
  - Gastrointestinal haemorrhage [Recovering/Resolving]
  - Haematemesis [Unknown]
  - Death [Fatal]
  - Vomiting [Recovering/Resolving]

NARRATIVE: CASE EVENT DATE: 202105
